FAERS Safety Report 5321486-4 (Version None)
Quarter: 2007Q2

REPORT INFORMATION
  Report Type: 
  Country: None (occurrence: None)
  Receive Date: 20070510
  Receipt Date: 20070507
  Transmission Date: 20071010
  Serious: Yes (Other)
  Sender: FDA-Public Use
  Company Number: US-ASTRAZENECA-2007UW10857

PATIENT
  Age: 26950 Day
  Sex: Female
  Weight: 56.2 kg

DRUGS (6)
  1. ARIMIDEX [Suspect]
     Indication: PROPHYLAXIS
     Route: 048
     Dates: start: 20050101
  2. ZOLOFT [Concomitant]
  3. POTASSIUM ACETATE [Concomitant]
  4. AMBIEN [Concomitant]
  5. PEPTO BISMOL [Concomitant]
  6. TYLENOL [Concomitant]

REACTIONS (1)
  - PANCREATITIS [None]
